FAERS Safety Report 4679294-3 (Version None)
Quarter: 2005Q2

REPORT INFORMATION
  Report Type: 
  Country: None (occurrence: None)
  Receive Date: 20050531
  Receipt Date: 20050519
  Transmission Date: 20051028
  Serious: Yes (Disabling)
  Sender: FDA-Public Use
  Company Number: 200402138

PATIENT
  Age: 57 Year
  Sex: Female

DRUGS (1)
  1. BOTOX [Suspect]
     Indication: SKIN WRINKLING
     Dates: start: 20040205, end: 20040205

REACTIONS (15)
  - ARTHRALGIA [None]
  - BEDRIDDEN [None]
  - DIFFICULTY IN WALKING [None]
  - DRUG HYPERSENSITIVITY [None]
  - ECCHYMOSIS [None]
  - EOSINOPHIL COUNT INCREASED [None]
  - HYPOKINESIA [None]
  - IMPAIRED WORK ABILITY [None]
  - JOINT SWELLING [None]
  - MALAISE [None]
  - NO REACTION ON PREVIOUS EXPOSURE TO DRUG [None]
  - OEDEMA PERIPHERAL [None]
  - SERUM SICKNESS [None]
  - SKIN DISCOLOURATION [None]
  - SWELLING [None]
